FAERS Safety Report 15661328 (Version 2)
Quarter: 2018Q4

REPORT INFORMATION
  Report Type: Spontaneous
  Country: AU (occurrence: AU)
  Receive Date: 20181127
  Receipt Date: 20181205
  Transmission Date: 20190205
  Serious: Yes (Hospitalization, Other)
  Sender: FDA-Public Use
  Company Number: AU-GW PHARMA-201808AUGW0349

PATIENT

DRUGS (10)
  1. EPIDIOLEX [Suspect]
     Active Substance: CANNABIDIOL
     Indication: SEVERE MYOCLONIC EPILEPSY OF INFANCY
     Dosage: 24.5MG/KG, 600.0 MILLIGRAM, QD
     Route: 048
     Dates: start: 20171111, end: 20180828
  2. EPIDIOLEX [Suspect]
     Active Substance: CANNABIDIOL
     Dosage: 16.3MG/KG, 200 MILLIGRAM, BID
     Route: 048
     Dates: start: 20180828
  3. ALODORM [Concomitant]
     Active Substance: NITRAZEPAM
     Indication: EPILEPSY
     Dosage: 2.5 MILLIGRAM, QD AT NIGHT
     Route: 065
     Dates: start: 2016
  4. FRISIUM [Concomitant]
     Active Substance: CLOBAZAM
     Indication: EPILEPSY
     Dosage: 10 MILLIGRAM, TID (7AM, 1PM, 8-9PM)
     Route: 065
     Dates: start: 2011
  5. SWISSE KIDS MULTI [Concomitant]
     Indication: SUPPLEMENTATION THERAPY
     Dosage: 1 TABLET, QD
     Route: 065
  6. EPILIM [Suspect]
     Active Substance: VALPROATE SODIUM
     Indication: EPILEPSY
     Dosage: 200 MILLIGRAM, QD
     Route: 048
     Dates: start: 2015
  7. INOVELON [Concomitant]
     Active Substance: RUFINAMIDE
     Indication: EPILEPSY
     Dosage: 16 MILLILITER, BID
     Route: 048
     Dates: start: 2015
  8. EPIDIOLEX [Suspect]
     Active Substance: CANNABIDIOL
     Dosage: 24.5MG/KG, 600.0 MILLIGRAM, QD
     Route: 048
     Dates: start: 2018
  9. PROBIOTICS NOS [Concomitant]
     Active Substance: PROBIOTICS NOS
     Indication: SUPPLEMENTATION THERAPY
     Dosage: 1 TABLET, QD
     Route: 065
  10. MIDAZOLAM [Concomitant]
     Active Substance: MIDAZOLAM HYDROCHLORIDE
     Indication: SEIZURE
     Dosage: 5 MILLIGRAM, PRN
     Route: 045

REACTIONS (3)
  - Liver function test increased [Recovered/Resolved]
  - Generalised tonic-clonic seizure [Recovered/Resolved]
  - Pneumonia [Recovered/Resolved]

NARRATIVE: CASE EVENT DATE: 20180828
